FAERS Safety Report 6308019-0 (Version None)
Quarter: 2009Q3

REPORT INFORMATION
  Report Type: 
  Country: None (occurrence: None)
  Receive Date: 20090813
  Receipt Date: 20090804
  Transmission Date: 20100115
  Serious: Yes (Hospitalization)
  Sender: FDA-Public Use
  Company Number: A0777155A

PATIENT
  Age: 46 Year
  Sex: Male
  Weight: 90.9 kg

DRUGS (8)
  1. AVANDIA [Suspect]
     Indication: DIABETES MELLITUS
     Dosage: 8MG PER DAY
     Route: 048
     Dates: start: 20001128, end: 20070101
  2. GLUCOPHAGE [Concomitant]
  3. ZOLOFT [Concomitant]
  4. LIPITOR [Concomitant]
  5. TOPROL-XL [Concomitant]
  6. METFORMIN [Concomitant]
  7. TRAZODONE HCL [Concomitant]
  8. INSULIN [Concomitant]

REACTIONS (3)
  - ACUTE MYOCARDIAL INFARCTION [None]
  - CORONARY ARTERY DISEASE [None]
  - MYOCARDIAL ISCHAEMIA [None]
